FAERS Safety Report 10474814 (Version 1)
Quarter: 2014Q3

REPORT INFORMATION
  Report Type: Spontaneous
  Country: US (occurrence: US)
  Receive Date: 20140925
  Receipt Date: 20140925
  Transmission Date: 20150326
  Serious: Yes (Death)
  Sender: FDA-Public Use
  Company Number: US-UCBSA-2014012678

PATIENT
  Age: 73 Year
  Sex: Female

DRUGS (1)
  1. KEPPRA [Suspect]
     Active Substance: LEVETIRACETAM
     Indication: CONVULSION
     Dosage: 500MG/4DAY
     Dates: end: 20140321

REACTIONS (1)
  - Death [Fatal]

NARRATIVE: CASE EVENT DATE: 20140321
